FAERS Safety Report 8122952-9 (Version None)
Quarter: 2012Q1

REPORT INFORMATION
  Report Type: 
  Country: None (occurrence: None)
  Receive Date: 20120208
  Receipt Date: 20120203
  Transmission Date: 20120608
  Serious: Yes (Other)
  Sender: FDA-Public Use
  Company Number: AU-BAYER-2012-003041

PATIENT
  Sex: Female

DRUGS (2)
  1. MIRENA [Suspect]
     Dosage: 20 MCG/24HR, CONT
     Route: 015
     Dates: start: 20120110
  2. MIRENA [Suspect]
     Indication: CONTRACEPTION
     Dosage: 20 MCG/24HR, CONT
     Route: 015
     Dates: start: 20070101, end: 20120110

REACTIONS (5)
  - PROCEDURAL PAIN [None]
  - PREMENSTRUAL SYNDROME [None]
  - DEVICE COMPONENT ISSUE [None]
  - VAGINAL HAEMORRHAGE [None]
  - PRESYNCOPE [None]
